FAERS Safety Report 9880465 (Version 1)
Quarter: 2014Q1

REPORT INFORMATION
  Report Type: Spontaneous
  Country: FR (occurrence: FR)
  Receive Date: 20140207
  Receipt Date: 20140207
  Transmission Date: 20141002
  Serious: Yes (Hospitalization)
  Sender: FDA-Public Use
  Company Number: FR-JNJFOC-20140118455

PATIENT
  Age: 49 Year
  Sex: Male

DRUGS (6)
  1. PREZISTA [Suspect]
     Indication: HIV INFECTION
     Route: 048
     Dates: start: 20131120, end: 20140106
  2. ISENTRESS [Suspect]
     Indication: HIV INFECTION
     Route: 048
     Dates: start: 20131120, end: 20140106
  3. NORVIR [Suspect]
     Indication: HIV INFECTION
     Route: 048
     Dates: start: 20131120, end: 20140106
  4. BACTRIM [Concomitant]
     Route: 065
  5. AZADOSE [Concomitant]
     Route: 065
  6. AUGMENTIN [Concomitant]
     Indication: HYPERTHERMIA
     Route: 065
     Dates: start: 20131215, end: 20131223

REACTIONS (3)
  - Rash maculo-papular [Recovered/Resolved]
  - Pruritus [Recovered/Resolved]
  - Eosinophilia [Recovered/Resolved]
